FAERS Safety Report 11235317 (Version 1)
Quarter: 2015Q3

REPORT INFORMATION
  Report Type: Spontaneous
  Country: US (occurrence: US)
  Receive Date: 20150702
  Receipt Date: 20150702
  Transmission Date: 20151125
  Serious: No
  Sender: FDA-Public Use
  Company Number: US-GLAXOSMITHKLINE-US2015093321

PATIENT
  Age: 43 Year

DRUGS (9)
  1. EFFEXOR XR EXTENDED-RELEASE [Concomitant]
     Active Substance: VENLAFAXINE HYDROCHLORIDE
  2. MAGNESIUM [Concomitant]
     Active Substance: MAGNESIUM
  3. LYRICA [Concomitant]
     Active Substance: PREGABALIN
  4. VITAMIN D3 [Concomitant]
     Active Substance: CHOLECALCIFEROL
  5. ADVAIR DISKUS [Suspect]
     Active Substance: FLUTICASONE PROPIONATE\SALMETEROL XINAFOATE
     Indication: ASTHMA
     Dosage: 1 PUFF(S), BID
     Route: 055
     Dates: start: 20150625, end: 20150628
  6. ADVAIR DISKUS [Suspect]
     Active Substance: FLUTICASONE PROPIONATE\SALMETEROL XINAFOATE
     Indication: CHRONIC OBSTRUCTIVE PULMONARY DISEASE
  7. BACLOFEN. [Concomitant]
     Active Substance: BACLOFEN
  8. TUMERIC [Concomitant]
  9. CELEBREX [Concomitant]
     Active Substance: CELECOXIB

REACTIONS (2)
  - Rash [Recovered/Resolved]
  - Pruritus [Recovered/Resolved]

NARRATIVE: CASE EVENT DATE: 20150626
